FAERS Safety Report 15239986 (Version 4)
Quarter: 2020Q3

REPORT INFORMATION
  Report Type: Report from Study
  Country: US (occurrence: US)
  Receive Date: 20180803
  Receipt Date: 20200701
  Transmission Date: 20201102
  Serious: Yes (Death, Hospitalization)
  Sender: FDA-Public Use
  Company Number: US-ACTELION-A-US2017-164516

PATIENT
  Age: 72 Year
  Sex: Male

DRUGS (10)
  1. OPSUMIT [Suspect]
     Active Substance: MACITENTAN
     Indication: PULMONARY HYPERTENSION
     Dosage: 10 MG, QD
     Route: 048
     Dates: start: 20171201, end: 20171210
  2. ELIQUIS [Concomitant]
     Active Substance: APIXABAN
     Dosage: 5 MG, BID
  3. TYVASO [Concomitant]
     Active Substance: TREPROSTINIL
  4. SOTALOL. [Concomitant]
     Active Substance: SOTALOL
     Dosage: 80 MG, BID
  5. PREDNISONE. [Concomitant]
     Active Substance: PREDNISONE
     Dosage: 8 MG, QOD
  6. OPSUMIT [Suspect]
     Active Substance: MACITENTAN
     Dosage: 10 MG, UNK
     Route: 048
     Dates: start: 201801, end: 20180730
  7. CRESTOR [Concomitant]
     Active Substance: ROSUVASTATIN CALCIUM
     Dosage: 40 MG, QD
  8. FUROSEMIDE. [Concomitant]
     Active Substance: FUROSEMIDE
     Dosage: 40 MG, TID
  9. MINERAL SUPPLEMENTS [Concomitant]
     Active Substance: MINERALS
     Dosage: UNK
  10. NORVASC [Concomitant]
     Active Substance: AMLODIPINE BESYLATE
     Dosage: 10 MG, QD

REACTIONS (26)
  - Flatulence [Recovered/Resolved with Sequelae]
  - Hypotension [Recovered/Resolved with Sequelae]
  - Constipation [Unknown]
  - Acute respiratory failure [Recovered/Resolved with Sequelae]
  - Oedema peripheral [Recovered/Resolved with Sequelae]
  - Fluid retention [Recovered/Resolved with Sequelae]
  - Chest discomfort [Recovering/Resolving]
  - Pneumonia [Recovered/Resolved with Sequelae]
  - Dizziness [Recovered/Resolved with Sequelae]
  - Oedema [Recovered/Resolved with Sequelae]
  - Pneumonia legionella [Fatal]
  - Blood creatinine increased [Fatal]
  - Pyrexia [Unknown]
  - Hypoxia [Recovered/Resolved with Sequelae]
  - Oropharyngeal pain [Recovering/Resolving]
  - Product dose omission issue [Not Recovered/Not Resolved]
  - Abdominal discomfort [Recovered/Resolved with Sequelae]
  - Dyspnoea [Recovered/Resolved with Sequelae]
  - General physical health deterioration [Unknown]
  - Acute kidney injury [Fatal]
  - Diarrhoea [Recovered/Resolved with Sequelae]
  - Influenza like illness [Recovering/Resolving]
  - Pulmonary hypertension [Fatal]
  - Haemodialysis [Unknown]
  - Abdominal distension [Recovered/Resolved with Sequelae]
  - Disease progression [Fatal]

NARRATIVE: CASE EVENT DATE: 201712
